FAERS Safety Report 5131339-2 (Version None)
Quarter: 2006Q4

REPORT INFORMATION
  Report Type: 
  Country: None (occurrence: None)
  Receive Date: 20061016
  Receipt Date: 20061003
  Transmission Date: 20070319
  Serious: Yes (Other)
  Sender: FDA-Public Use
  Company Number: 2006121673

PATIENT
  Age: 62 Year
  Sex: Male
  Weight: 83.9154 kg

DRUGS (6)
  1. LYRICA [Suspect]
     Indication: POST HERPETIC NEURALGIA
     Dosage: 225 MG (75 MG, 3 IN 1 D)
     Dates: start: 20060101
  2. LAMICTAL [Concomitant]
  3. ATENOLOL [Concomitant]
  4. FLOMAX [Concomitant]
  5. NEXIUM [Concomitant]
  6. WELLBUTRIN [Concomitant]

REACTIONS (3)
  - BREAST TENDERNESS [None]
  - HERPES ZOSTER [None]
  - REFUSAL OF TREATMENT BY PATIENT [None]
